FAERS Safety Report 4690634-1 (Version None)
Quarter: 2005Q2

REPORT INFORMATION
  Report Type: 
  Country: None (occurrence: None)
  Receive Date: 20050615
  Receipt Date: 20050509
  Transmission Date: 20051028
  Serious: Yes (Other)
  Sender: FDA-Public Use
  Company Number: CA-GLAXOSMITHKLINE-A0558051A

PATIENT
  Age: 61 Year
  Sex: Female
  Weight: 64.1 kg

DRUGS (6)
  1. AVANDIA [Suspect]
     Route: 048
     Dates: start: 20041108, end: 20050506
  2. GLYBURIDE [Concomitant]
     Dosage: 10MG TWICE PER DAY
     Route: 065
  3. ASPIRIN [Concomitant]
     Dosage: 81MG PER DAY
     Route: 048
  4. ALTACE [Concomitant]
     Indication: HYPERTENSION
     Dosage: 2.5MG PER DAY
     Route: 065
  5. LIPITOR [Concomitant]
     Dosage: 20MG PER DAY
     Route: 065
  6. METFORMIN [Concomitant]
     Dosage: 1500MG TWICE PER DAY
     Route: 065

REACTIONS (2)
  - NEUTROPENIA [None]
  - WHITE BLOOD CELL COUNT DECREASED [None]
